FAERS Safety Report 10915623 (Version 1)
Quarter: 2015Q1

REPORT INFORMATION
  Report Type: Spontaneous
  Country: US (occurrence: US)
  Receive Date: 20150316
  Receipt Date: 20150316
  Transmission Date: 20150721
  Serious: Yes (Hospitalization, Other)
  Sender: FDA-Public Use
  Company Number: US-ALEXION PHARMACEUTICALS INC.-A201500843

PATIENT

DRUGS (1)
  1. SOLIRIS [Suspect]
     Active Substance: ECULIZUMAB
     Indication: HAEMOLYTIC URAEMIC SYNDROME
     Dosage: UNK
     Route: 042
     Dates: start: 201412

REACTIONS (14)
  - Incorrect dose administered [Unknown]
  - Microangiopathic haemolytic anaemia [Unknown]
  - Thrombocytopenia [Unknown]
  - Meningitis aseptic [Unknown]
  - Blood immunoglobulin M increased [Unknown]
  - Mental status changes [Unknown]
  - Platelet count abnormal [Unknown]
  - Encephalitis [Unknown]
  - Infection [Unknown]
  - Blood lactate dehydrogenase abnormal [Unknown]
  - Malaise [Not Recovered/Not Resolved]
  - Abdominal pain [Unknown]
  - Headache [Unknown]
  - Delayed haemolytic transfusion reaction [Unknown]
